FAERS Safety Report 7712445-2 (Version None)
Quarter: 2011Q3

REPORT INFORMATION
  Report Type: 
  Country: None (occurrence: None)
  Receive Date: 20110823
  Receipt Date: 20110811
  Transmission Date: 20111222
  Serious: Yes (Other)
  Sender: FDA-Public Use
  Company Number: TPA2011A04851

PATIENT
  Age: 71 Year
  Sex: Male
  Weight: 97.0698 kg

DRUGS (8)
  1. ACTOS [Suspect]
     Indication: TYPE 2 DIABETES MELLITUS
     Dosage: 15 MG, 1 IN 1 D, PER ORAL
     Route: 048
     Dates: start: 20091101, end: 20110810
  2. ASPIRIN [Concomitant]
  3. TRAMADOL HCL [Concomitant]
  4. LISINOPRIL [Concomitant]
  5. TOPROL-XL [Concomitant]
  6. METFORMIN HCL [Concomitant]
  7. CRESTOR [Concomitant]
  8. NORVASC [Concomitant]

REACTIONS (2)
  - BLADDER TRANSITIONAL CELL CARCINOMA [None]
  - DISEASE RECURRENCE [None]
